FAERS Safety Report 8224512-8 (Version None)
Quarter: 2012Q1

REPORT INFORMATION
  Report Type: 
  Country: None (occurrence: None)
  Receive Date: 20120321
  Receipt Date: 20120315
  Transmission Date: 20120608
  Serious: Yes (Death)
  Sender: FDA-Public Use
  Company Number: JP-JNJFOC-20120106736

PATIENT
  Age: 81 Year
  Sex: Female

DRUGS (3)
  1. FENTANYL-100 [Suspect]
     Indication: CANCER PAIN
     Route: 062
     Dates: start: 20111122, end: 20111206
  2. FENTANYL-100 [Suspect]
     Route: 062
     Dates: start: 20111207
  3. FENTANYL-100 [Suspect]
     Route: 062
     Dates: start: 20111018, end: 20111121

REACTIONS (1)
  - GASTRIC CANCER [None]
